FAERS Safety Report 15131579 (Version 1)
Quarter: 2018Q3

REPORT INFORMATION
  Report Type: Spontaneous
  Country: FR (occurrence: FR)
  Receive Date: 20180711
  Receipt Date: 20180711
  Transmission Date: 20181010
  Serious: Yes (Hospitalization)
  Sender: FDA-Public Use
  Company Number: FR-MYLANLABS-2018M1049303

PATIENT
  Age: 46 Year
  Sex: Female
  Weight: 107 kg

DRUGS (1)
  1. METHOTREXATE. [Suspect]
     Active Substance: METHOTREXATE
     Indication: PSORIATIC ARTHROPATHY
     Dosage: 15 MG, UNK
     Route: 048

REACTIONS (3)
  - Visual impairment [Unknown]
  - Asthenia [Unknown]
  - Vertigo [Unknown]

NARRATIVE: CASE EVENT DATE: 20160902
